FAERS Safety Report 16929440 (Version 1)
Quarter: 2019Q4

REPORT INFORMATION
  Report Type: Spontaneous
  Country: US (occurrence: US)
  Receive Date: 20191016
  Receipt Date: 20191016
  Transmission Date: 20200122
  Serious: Yes (Hospitalization)
  Sender: FDA-Public Use
  Company Number: None

PATIENT
  Age: 81 Year
  Sex: Male
  Weight: 59.85 kg

DRUGS (6)
  1. METOPROLOL TARTRATE 50 MG TABLET [Concomitant]
  2. VITAMIN D3 [Concomitant]
     Active Substance: CHOLECALCIFEROL
  3. RIVAROXABAN 20 MG TAB [Concomitant]
     Dates: start: 20190528
  4. ACYCLOVIR 800 MG [Concomitant]
  5. DUVELISIB [Suspect]
     Active Substance: DUVELISIB
     Indication: CHRONIC LYMPHOCYTIC LEUKAEMIA
     Route: 048
     Dates: start: 20190528, end: 20190709
  6. AMIODARONE 200 MG TABLE [Concomitant]
     Dates: end: 20190618

REACTIONS (5)
  - Cardiac failure congestive [None]
  - Petechiae [None]
  - Pulmonary oedema [None]
  - Orthopnoea [None]
  - Dyspnoea exertional [None]

NARRATIVE: CASE EVENT DATE: 20190712
